FAERS Safety Report 23352979 (Version 1)
Quarter: 2023Q4

REPORT INFORMATION
  Report Type: Spontaneous
  Country: FR (occurrence: FR)
  Receive Date: 20231230
  Receipt Date: 20231230
  Transmission Date: 20240109
  Serious: Yes (Death, Hospitalization)
  Sender: FDA-Public Use
  Company Number: None

PATIENT
  Age: 75 Year
  Sex: Female
  Weight: 65.8 kg

DRUGS (10)
  1. ATORVASTATIN [Interacting]
     Active Substance: ATORVASTATIN
     Indication: Prophylaxis
  2. COLCHICINE [Interacting]
     Active Substance: COLCHICINE
     Indication: Gouty arthritis
     Dosage: STRENGTH: 1MG
     Dates: start: 20230820, end: 20231004
  3. RILMENIDINE [Concomitant]
     Active Substance: RILMENIDINE
     Indication: Hypertension
  4. CHOLECALCIFEROL [Concomitant]
     Active Substance: CHOLECALCIFEROL
     Indication: Vitamin supplementation
  5. FUROSEMIDE [Concomitant]
     Active Substance: FUROSEMIDE
     Indication: Cardiac failure
     Dosage: 80 MG IN THE MORNING, 40 MG AT NOON
  6. NEBIVOLOL [Concomitant]
     Active Substance: NEBIVOLOL
     Indication: Hypertension
     Dosage: IN THE MORNING
  7. LANTUS [Concomitant]
     Active Substance: INSULIN GLARGINE
     Indication: Insulin-requiring type 2 diabetes mellitus
     Dosage: IN THE EVENING
  8. ELIQUIS [Concomitant]
     Active Substance: APIXABAN
     Indication: Atrial fibrillation
     Dosage: STRENGTH: 2.5MG
  9. COVERAM [Concomitant]
     Active Substance: AMLODIPINE\PERINDOPRIL
     Indication: Hypertension
     Dosage: STRENGTH: 10MG/10MG
  10. DAPAGLIFLOZIN [Concomitant]
     Active Substance: DAPAGLIFLOZIN
     Indication: Insulin-requiring type 2 diabetes mellitus
     Dosage: IN THE MORNING, STRENGTH: 10MG

REACTIONS (5)
  - Metabolic acidosis [Fatal]
  - Drug interaction [Fatal]
  - Diarrhoea [Unknown]
  - Overdose [Fatal]
  - Vomiting [Unknown]

NARRATIVE: CASE EVENT DATE: 20231010
